FAERS Safety Report 4895552-1 (Version None)
Quarter: 2006Q1

REPORT INFORMATION
  Report Type: 
  Country: None (occurrence: None)
  Receive Date: 20060130
  Receipt Date: 20051222
  Transmission Date: 20060701
  Serious: Yes (Death)
  Sender: FDA-Public Use
  Company Number: PHHO2005JP19883

PATIENT
  Age: 76 Year
  Sex: Female
  Weight: 44 kg

DRUGS (9)
  1. DIOVAN [Suspect]
     Indication: HYPERTENSION
     Dosage: 80 MG, QD
     Route: 048
     Dates: start: 20030507
  2. HUMALOG [Suspect]
     Indication: DIABETES MELLITUS
     Dosage: 9 IU, QD
     Dates: start: 20040714
  3. AMARYL [Concomitant]
     Indication: DIABETES MELLITUS
     Dosage: 6 MG
     Route: 048
     Dates: start: 20030213
  4. FLUITRAN [Concomitant]
     Indication: HYPERTENSION
     Dosage: 2 MG
     Route: 048
     Dates: start: 20030213
  5. NOVORAPID [Concomitant]
     Indication: DIABETES MELLITUS
     Dosage: 22 IU
     Route: 058
     Dates: start: 20030213
  6. GASMOTIN [Concomitant]
     Indication: NERVE INJURY
     Dosage: 15 MG
     Route: 048
     Dates: start: 20040714
  7. ADONA [Concomitant]
     Indication: RETINAL HAEMORRHAGE
     Dosage: 90 MG
     Route: 048
     Dates: start: 20040714
  8. FERROMIA [Concomitant]
     Dosage: 50 MG
     Route: 048
     Dates: start: 20040714
  9. CALONAL [Concomitant]
     Indication: BACK PAIN
     Dosage: 400 MG
     Route: 048
     Dates: start: 20040714

REACTIONS (1)
  - SUDDEN DEATH [None]
